FAERS Safety Report 6566652-5 (Version None)
Quarter: 2010Q1

REPORT INFORMATION
  Report Type: 
  Country: None (occurrence: None)
  Receive Date: 20100202
  Receipt Date: 20100126
  Transmission Date: 20100710
  Serious: Yes (Other)
  Sender: FDA-Public Use
  Company Number: US-ROCHE-681896

PATIENT
  Age: 67 Year
  Sex: Female
  Weight: 53.6 kg

DRUGS (6)
  1. BONIVA [Suspect]
     Indication: OSTEOPOROSIS
     Route: 048
     Dates: start: 20060601, end: 20100101
  2. FISH OIL [Concomitant]
  3. VITAMIN E [Concomitant]
  4. MAGNESIUM [Concomitant]
  5. VITAMIN C [Concomitant]
  6. CITRACAL + D [Concomitant]

REACTIONS (2)
  - ARTERIOSCLEROTIC RETINOPATHY [None]
  - INFLUENZA [None]
